FAERS Safety Report 20831615 (Version 2)
Quarter: 2022Q2

REPORT INFORMATION
  Report Type: Spontaneous
  Country: US (occurrence: US)
  Receive Date: 20220516
  Receipt Date: 20220616
  Transmission Date: 20220720
  Serious: No
  Sender: FDA-Public Use
  Company Number: US-JNJFOC-20220522943

PATIENT
  Age: 48 Year
  Sex: Female
  Weight: 72.7 kg

DRUGS (3)
  1. OPSUMIT [Suspect]
     Active Substance: MACITENTAN
     Indication: Product used for unknown indication
     Route: 048
  2. VELETRI [Suspect]
     Active Substance: EPOPROSTENOL
     Indication: Pulmonary arterial hypertension
     Dosage: VELETRI 1.5 MG VIAL INTRAVENOUS CONTINUOUS
     Route: 042
  3. TADALAFIL [Concomitant]
     Active Substance: TADALAFIL

REACTIONS (4)
  - Incorrect dose administered [Unknown]
  - Discomfort [Unknown]
  - Device breakage [Unknown]
  - Underdose [Unknown]

NARRATIVE: CASE EVENT DATE: 20220510
